FAERS Safety Report 6080851-0 (Version None)
Quarter: 2009Q1

REPORT INFORMATION
  Report Type: 
  Country: None (occurrence: None)
  Receive Date: 20090217
  Receipt Date: 20090205
  Transmission Date: 20090719
  Serious: Yes (Other)
  Sender: FDA-Public Use
  Company Number: US-SANOFI-SYNTHELABO-A03200900543

PATIENT
  Age: 70 Year
  Sex: Male

DRUGS (1)
  1. AMBIEN CR [Suspect]
     Indication: SLEEP STUDY
     Route: 048
     Dates: start: 20090201

REACTIONS (2)
  - ROAD TRAFFIC ACCIDENT [None]
  - SOMNOLENCE [None]
